FAERS Safety Report 24572126 (Version 1)
Quarter: 2024Q4

REPORT INFORMATION
  Report Type: Spontaneous
  Country: FR (occurrence: FR)
  Receive Date: 20241101
  Receipt Date: 20241101
  Transmission Date: 20250115
  Serious: Yes (Hospitalization)
  Sender: TEVA
  Company Number: None

PATIENT
  Age: 65 Year
  Sex: Female
  Weight: 81.5 kg

DRUGS (4)
  1. DIAZEPAM [Suspect]
     Active Substance: DIAZEPAM
     Indication: Encephalopathy
     Dosage: DIAZEPAM TEVA
     Route: 048
     Dates: start: 20240701, end: 20240720
  2. ERTAPENEM [Suspect]
     Active Substance: ERTAPENEM
     Indication: Enterobacter infection
     Dosage: POWDER FOR SOLUTION FOR DILUTION FOR INFUSION
     Route: 042
     Dates: start: 20240722, end: 20240723
  3. ERTAPENEM [Suspect]
     Active Substance: ERTAPENEM
     Indication: Enterobacter infection
     Dosage: ERTAPENEM ARROW, POWDER FOR SOLUTION FOR DILUTION FOR INFUSION
     Route: 042
     Dates: start: 20240626, end: 20240718
  4. ERTAPENEM [Suspect]
     Active Substance: ERTAPENEM
     Indication: Enterobacter infection
     Dosage: POWDER FOR SOLUTION FOR DILUTION FOR INFUSION
     Route: 042
     Dates: start: 20240719, end: 20240721

REACTIONS (1)
  - Encephalopathy [Recovered/Resolved]

NARRATIVE: CASE EVENT DATE: 20240720
